FAERS Safety Report 6569655-X (Version None)
Quarter: 2010Q1

REPORT INFORMATION
  Report Type: 
  Country: None (occurrence: None)
  Receive Date: 20100204
  Receipt Date: 20100122
  Transmission Date: 20100710
  Serious: Yes (Other)
  Sender: FDA-Public Use
  Company Number: PHHY2009FR53366

PATIENT
  Sex: Female
  Weight: 42 kg

DRUGS (3)
  1. TAREG [Suspect]
     Indication: MICROALBUMINURIA
     Dosage: 40 MG, QD
     Dates: start: 20080601, end: 20091201
  2. IMUREL [Concomitant]
     Indication: RENAL TRANSPLANT
     Dosage: 100 MG, DAILY
     Dates: start: 19820418
  3. CORTANCYL [Concomitant]
     Indication: RENAL TRANSPLANT
     Dosage: 5 MG, DAILY
     Dates: start: 19820418

REACTIONS (9)
  - COUGH [None]
  - DYSMENORRHOEA [None]
  - EAR PAIN [None]
  - FATIGUE [None]
  - HYPOTENSION [None]
  - NASOPHARYNGITIS [None]
  - PAIN IN EXTREMITY [None]
  - RHINITIS [None]
  - VERTIGO [None]
